FAERS Safety Report 10086615 (Version 2)
Quarter: 2014Q2

REPORT INFORMATION
  Report Type: Spontaneous
  Country: US (occurrence: US)
  Receive Date: 20140418
  Receipt Date: 20140418
  Transmission Date: 20141212
  Serious: Yes (Life-Threatening, Hospitalization, Other)
  Sender: FDA-Public Use
  Company Number: US-IAC JAPAN XML-USA-2014-0111346

PATIENT
  Age: 87 Year
  Sex: Male

DRUGS (14)
  1. BUTRANS [Suspect]
     Indication: BACK PAIN
     Dosage: 20 MCG/HR, WEEKLY
     Route: 062
  2. BUTRANS [Suspect]
     Dosage: UNK
     Dates: end: 20131122
  3. NORCO [Concomitant]
     Indication: PAIN
     Dosage: 5 MG, TID PRN
     Dates: start: 20130814
  4. ICY HOT                            /00095001/ [Concomitant]
     Indication: PRODUCT USED FOR UNKNOWN INDICATION
     Dosage: UNK, BID PRN
     Route: 061
     Dates: start: 20130510
  5. MIRALAX                            /00754501/ [Concomitant]
     Indication: PRODUCT USED FOR UNKNOWN INDICATION
     Dosage: 17 UNK, DAILY
     Dates: start: 20130510
  6. EFUDEX [Concomitant]
     Indication: PRODUCT USED FOR UNKNOWN INDICATION
     Dosage: UNK, BID PRN
     Dates: start: 20130510
  7. SENOKOT                            /00142201/ [Concomitant]
     Dosage: 1 TABLET, DAILY
     Dates: start: 20120118
  8. ZANTAC [Concomitant]
     Indication: PRODUCT USED FOR UNKNOWN INDICATION
     Dosage: 300 MG, HS
     Route: 048
     Dates: start: 20110725
  9. PROTONIX [Concomitant]
     Indication: PRODUCT USED FOR UNKNOWN INDICATION
     Dosage: 40 MG, DAILY
     Dates: start: 20110110
  10. MULTIVITAMIN                       /00097801/ [Concomitant]
     Indication: PRODUCT USED FOR UNKNOWN INDICATION
     Dosage: 1 TABLET, DAILY
  11. CALTRATE                           /00751519/ [Concomitant]
     Indication: PRODUCT USED FOR UNKNOWN INDICATION
     Dosage: 1 TABLET, DAILY
     Dates: start: 20110110
  12. OCUVITE                            /01053801/ [Concomitant]
     Indication: PRODUCT USED FOR UNKNOWN INDICATION
     Dosage: 1 TABLET, DAILY
  13. LIDEX [Concomitant]
     Indication: PRODUCT USED FOR UNKNOWN INDICATION
     Dosage: UNK, BID PRN
     Route: 061
     Dates: start: 20101110
  14. CLINDAMYCIN PHOSPHATE [Concomitant]
     Indication: PRODUCT USED FOR UNKNOWN INDICATION
     Dosage: 1 %, BID
     Route: 061
     Dates: start: 20101110

REACTIONS (23)
  - Cardiac failure congestive [Unknown]
  - Ventricular extrasystoles [Unknown]
  - Supraventricular extrasystoles [Unknown]
  - Bundle branch block left [Unknown]
  - Left ventricular hypertrophy [Unknown]
  - Myocardial infarction [Unknown]
  - Myocardial ischaemia [Unknown]
  - Atrial flutter [Unknown]
  - Left atrial dilatation [Unknown]
  - Sacroiliitis [Unknown]
  - Electrocardiogram QT prolonged [Recovered/Resolved]
  - Pain [Unknown]
  - Dyspnoea [Unknown]
  - Back pain [Unknown]
  - Confusional state [Unknown]
  - Gait disturbance [Unknown]
  - Memory impairment [Unknown]
  - Restlessness [Unknown]
  - Restless legs syndrome [Unknown]
  - Drug ineffective [Unknown]
  - Abdominal tenderness [Unknown]
  - Extra dose administered [Unknown]
  - Condition aggravated [Unknown]
